FAERS Safety Report 8279920-6 (Version None)
Quarter: 2012Q2

REPORT INFORMATION
  Report Type: 
  Country: None (occurrence: None)
  Receive Date: 20120412
  Receipt Date: 20120411
  Transmission Date: 20120825
  Serious: No
  Sender: FDA-Public Use
  Company Number: US-PFIZER INC-2012089976

PATIENT
  Sex: Male

DRUGS (1)
  1. PRISTIQ [Suspect]
     Indication: DEPRESSION
     Dosage: UNK

REACTIONS (3)
  - DRY MOUTH [None]
  - FEAR [None]
  - CONSTIPATION [None]
